FAERS Safety Report 17519358 (Version 1)
Quarter: 2020Q1

REPORT INFORMATION
  Report Type: Spontaneous
  Country: US (occurrence: US)
  Receive Date: 20200310
  Receipt Date: 20200310
  Transmission Date: 20200409
  Serious: No
  Sender: FDA-Public Use
  Company Number: US-ALLERGAN-1932503US

PATIENT
  Age: 73 Year
  Sex: Female

DRUGS (2)
  1. FORTEO [Concomitant]
     Active Substance: TERIPARATIDE
     Dosage: 600 MG PER 2.4 ML INJECTION
  2. ESTRACE [Suspect]
     Active Substance: ESTRADIOL
     Indication: MENOPAUSAL SYMPTOMS
     Dosage: EVERY NIGHT FOR 2 WEEKS AND THEN 2 MG EACH TIME AT NIGHT TWICE A WEEK (TOTAL 28 MG FOR A MONTH)
     Route: 065
     Dates: start: 20190718

REACTIONS (5)
  - Incorrect dose administered [Unknown]
  - Product quality issue [Unknown]
  - Hyperaesthesia [Not Recovered/Not Resolved]
  - Breast tenderness [Not Recovered/Not Resolved]
  - Breast discomfort [Not Recovered/Not Resolved]

NARRATIVE: CASE EVENT DATE: 201906
